FAERS Safety Report 8563001 (Version 2)
Quarter: 2013Q2

REPORT INFORMATION
  Report Type: Spontaneous
  Country: US (occurrence: US)
  Receive Date: 20120515
  Receipt Date: 20130617
  Transmission Date: 20140414
  Serious: Yes (Hospitalization, Other)
  Sender: FDA-Public Use
  Company Number: US-BAYER-2012-046829

PATIENT
  Age: 28 Year
  Sex: Female
  Weight: 117.91 kg

DRUGS (12)
  1. YAZ [Suspect]
     Indication: CONTRACEPTION
     Dosage: UNK
     Dates: start: 20061009, end: 20100506
  2. YAZ [Suspect]
     Indication: PREMENSTRUAL SYNDROME
  3. ZYRTEC [Concomitant]
     Indication: MULTIPLE ALLERGIES
     Dosage: DAILY
  4. PROVENTIL [Concomitant]
     Indication: ASTHMA
  5. METOCLOPRAMIDE [Concomitant]
     Dosage: 10 MG, UNK
     Dates: start: 20100513
  6. ZONISAMIDE [Concomitant]
     Dosage: 10 MG, UNK
     Dates: start: 20100513
  7. AMBIEN CR [Concomitant]
     Dosage: 12.5 MG, UNK
     Dates: start: 20100513
  8. SUCRALFATE [Concomitant]
     Dosage: 1 GM
     Dates: start: 20100624
  9. XYZAL [Concomitant]
     Dosage: UNK
     Dates: start: 20100715
  10. ACIPHEX [Concomitant]
     Indication: GASTROOESOPHAGEAL REFLUX DISEASE
     Dosage: UNK
     Dates: start: 20100715
  11. LOESTRIN FE [Concomitant]
  12. VITAMIN D [Concomitant]

REACTIONS (5)
  - Pain [None]
  - Injury [None]
  - Mental disorder [None]
  - Biliary dyskinesia [None]
  - Gallbladder disorder [None]
